FAERS Safety Report 17773994 (Version 2)
Quarter: 2020Q4

REPORT INFORMATION
  Report Type: Other
  Country: GB (occurrence: GB)
  Receive Date: 20200513
  Receipt Date: 20201012
  Transmission Date: 20210113
  Serious: Yes (Death, Other)
  Sender: FDA-Public Use
  Company Number: GB-ROCHE-2594991

PATIENT

DRUGS (7)
  1. AVELUMAB [Suspect]
     Active Substance: AVELUMAB
     Indication: MALIGNANT MELANOMA
     Route: 065
  2. ATEZOLIZUMAB. [Suspect]
     Active Substance: ATEZOLIZUMAB
     Indication: MALIGNANT MELANOMA
     Route: 041
  3. DURVALUMAB. [Suspect]
     Active Substance: DURVALUMAB
     Indication: MALIGNANT MELANOMA
     Route: 065
  4. PEMBROLIZUMAB. [Suspect]
     Active Substance: PEMBROLIZUMAB
     Indication: MALIGNANT MELANOMA
     Route: 065
  5. NIVOLUMAB [Suspect]
     Active Substance: NIVOLUMAB
     Indication: MALIGNANT MELANOMA
     Route: 065
  6. IPILIMUMAB [Suspect]
     Active Substance: IPILIMUMAB
     Indication: MALIGNANT MELANOMA
     Route: 065
  7. TREMELIMUMAB. [Suspect]
     Active Substance: TREMELIMUMAB
     Indication: MALIGNANT MELANOMA
     Route: 065

REACTIONS (102)
  - Sepsis [Fatal]
  - Pruritus [Unknown]
  - Jaundice [Unknown]
  - Abdominal pain [Unknown]
  - Hemiplegia [Unknown]
  - Coordination abnormal [Unknown]
  - Back pain [Unknown]
  - Wound secretion [Unknown]
  - Pneumonia [Unknown]
  - Pulmonary embolism [Unknown]
  - Sinusitis [Unknown]
  - Intestinal obstruction [Unknown]
  - Obstruction gastric [Unknown]
  - Abdominal sepsis [Unknown]
  - Pericardial effusion [Unknown]
  - Haematoma [Unknown]
  - Colitis [Fatal]
  - Pancreatitis [Unknown]
  - Thrombocytopenia [Unknown]
  - Mobility decreased [Unknown]
  - Peripheral swelling [Unknown]
  - Arthralgia [Unknown]
  - Oral pain [Unknown]
  - Anaemia [Unknown]
  - Chronic obstructive pulmonary disease [Unknown]
  - Febrile neutropenia [Unknown]
  - Hyponatraemia [Unknown]
  - Ischaemic hepatitis [Unknown]
  - Atelectasis [Unknown]
  - Musculoskeletal pain [Unknown]
  - Portal vein thrombosis [Unknown]
  - Myocarditis [Unknown]
  - Haemoptysis [Unknown]
  - Headache [Unknown]
  - Fatigue [Unknown]
  - Cellulitis [Unknown]
  - Gravitational oedema [Unknown]
  - Hyperkalaemia [Unknown]
  - Central nervous system vasculitis [Fatal]
  - Hypophysitis [Unknown]
  - Nausea [Unknown]
  - Dysphagia [Unknown]
  - Dyspnoea [Unknown]
  - Confusional state [Unknown]
  - Mental status changes [Unknown]
  - Seizure [Unknown]
  - Palpitations [Unknown]
  - Epistaxis [Unknown]
  - Fall [Unknown]
  - Lower respiratory tract infection [Unknown]
  - Urosepsis [Unknown]
  - Anxiety [Unknown]
  - Lung neoplasm [Unknown]
  - Epstein-Barr virus infection [Unknown]
  - Hyperglycaemia [Unknown]
  - Migraine [Unknown]
  - Large intestine infection [Unknown]
  - Hepatitis [Unknown]
  - Vomiting [Unknown]
  - Rash [Unknown]
  - Blood test abnormal [Unknown]
  - Catheter site erythema [Unknown]
  - Cardiac failure congestive [Unknown]
  - Tumour compression [Unknown]
  - Pyelonephritis [Unknown]
  - Wound infection [Unknown]
  - Device related infection [Unknown]
  - Mucosal inflammation [Unknown]
  - Tumour haemorrhage [Unknown]
  - Duodenal obstruction [Unknown]
  - Intussusception [Unknown]
  - Orthostatic hypotension [Unknown]
  - Superior vena cava occlusion [Unknown]
  - Nephritis [Unknown]
  - Dermatitis [Unknown]
  - Encephalitis [Unknown]
  - Presyncope [Unknown]
  - Pyrexia [Unknown]
  - Upper respiratory tract infection [Unknown]
  - Atrial fibrillation [Unknown]
  - Device related thrombosis [Unknown]
  - Biliary obstruction [Unknown]
  - Pleural effusion [Unknown]
  - Trigeminal neuralgia [Unknown]
  - Pneumonitis [Fatal]
  - Diarrhoea [Unknown]
  - Abdominal distension [Unknown]
  - Cough [Unknown]
  - Gout [Unknown]
  - Oesophageal stenosis [Unknown]
  - Dizziness [Unknown]
  - Neck pain [Unknown]
  - Acute kidney injury [Unknown]
  - Swelling face [Unknown]
  - Gastritis [Unknown]
  - Hypercalcaemia [Unknown]
  - Ascites [Unknown]
  - Device occlusion [Unknown]
  - Lymphangitis [Unknown]
  - Pulmonary haemorrhage [Unknown]
  - Stasis dermatitis [Unknown]
  - Diabetic ketoacidosis [Unknown]
